FAERS Safety Report 5937687-8 (Version None)
Quarter: 2008Q4

REPORT INFORMATION
  Report Type: 
  Country: None (occurrence: None)
  Receive Date: 20081031
  Receipt Date: 20081024
  Transmission Date: 20090506
  Serious: Yes (Hospitalization, Other)
  Sender: FDA-Public Use
  Company Number: US-MERCK-0711USA07026

PATIENT
  Age: 56 Year
  Sex: Female

DRUGS (7)
  1. FOSAMAX [Suspect]
     Indication: OSTEOPOROSIS
     Route: 048
     Dates: start: 19990601, end: 20011101
  2. LOPRESSOR [Concomitant]
     Indication: HYPERTENSION
     Route: 065
     Dates: start: 19800101
  3. TOFRANIL [Concomitant]
     Route: 065
  4. TRANXENE [Concomitant]
     Route: 065
  5. ZYRTEC [Concomitant]
     Route: 065
  6. ACULAR [Concomitant]
     Route: 065
  7. ACTONEL [Suspect]
     Indication: OSTEOMYELITIS
     Route: 065
     Dates: start: 20011201, end: 20060417

REACTIONS (13)
  - ANXIETY [None]
  - BLOOD BLISTER [None]
  - DEPRESSION [None]
  - DIABETES MELLITUS [None]
  - DIARRHOEA [None]
  - FASCIAL INFECTION [None]
  - JAW FRACTURE [None]
  - OSTEITIS [None]
  - OSTEOMYELITIS [None]
  - OSTEONECROSIS [None]
  - RAYNAUD'S PHENOMENON [None]
  - SCOLIOSIS [None]
  - SPEECH DISORDER [None]
